FAERS Safety Report 12310356 (Version 1)
Quarter: 2016Q2

REPORT INFORMATION
  Report Type: Spontaneous
  Country: US (occurrence: US)
  Receive Date: 20160427
  Receipt Date: 20160427
  Transmission Date: 20160815
  Serious: No
  Sender: FDA-Public Use
  Company Number: US-BAYER-2016-071912

PATIENT
  Age: 42 Year
  Sex: Female

DRUGS (5)
  1. RETINOIC ACID [Concomitant]
     Active Substance: TRETINOIN
  2. FLUDARABINE [Concomitant]
     Active Substance: FLUDARABINE PHOSPHATE
  3. IDARUBICIN [Concomitant]
     Active Substance: IDARUBICIN
  4. SORAFENIB (RAF KINASE INHIBITOR) [Suspect]
     Active Substance: SORAFENIB
     Indication: ACUTE MYELOID LEUKAEMIA
     Route: 048
  5. CYTARABINE. [Concomitant]
     Active Substance: CYTARABINE

REACTIONS (1)
  - Off label use [None]
